FAERS Safety Report 12340893 (Version 1)
Quarter: 2016Q2

REPORT INFORMATION
  Report Type: Spontaneous
  Country: US (occurrence: None)
  Receive Date: 20160505
  Receipt Date: 20160505
  Transmission Date: 20160815
  Serious: No
  Sender: FDA-Public Use
  Company Number: UNT-2016-004521

PATIENT
  Age: 51 Year
  Sex: Female
  Weight: 52.2 kg

DRUGS (4)
  1. PROCARDIA [Concomitant]
     Active Substance: NIFEDIPINE
  2. TYVASO [Suspect]
     Active Substance: TREPROSTINIL
     Dosage: 18-54 MICROGRAMS, QID, INHALATION
     Route: 055
     Dates: start: 20150803
  3. NIFEDICAL (NIFEDIPINE) [Concomitant]
  4. REVATIO [Concomitant]
     Active Substance: SILDENAFIL CITRATE

REACTIONS (3)
  - Malaise [None]
  - Incorrect dose administered by device [None]
  - Device issue [None]
